FAERS Safety Report 9143326 (Version 1)
Quarter: 2013Q1

REPORT INFORMATION
  Report Type: Spontaneous
  Country: US (occurrence: US)
  Receive Date: 20130306
  Receipt Date: 20130306
  Transmission Date: 20140127
  Serious: No
  Sender: FDA-Public Use
  Company Number: US-ENDO PHARMACEUTICALS INC.-OPER20120386

PATIENT
  Sex: Female
  Weight: 65.83 kg

DRUGS (6)
  1. OPANA ER [Suspect]
     Indication: SPINAL CORD NEOPLASM
     Route: 048
     Dates: end: 20120229
  2. OPANA ER [Suspect]
     Indication: FRACTURE
  3. OPANA ER [Suspect]
     Indication: SURGERY
  4. OPANA ER 20MG [Suspect]
     Indication: SPINAL CORD NEOPLASM
     Route: 048
     Dates: end: 20120229
  5. OPANA ER 20MG [Suspect]
     Indication: FRACTURE
  6. OPANA ER 20MG [Suspect]
     Indication: SURGERY

REACTIONS (1)
  - No adverse event [Unknown]
